FAERS Safety Report 7361272-7 (Version None)
Quarter: 2011Q1

REPORT INFORMATION
  Report Type: 
  Country: None (occurrence: None)
  Receive Date: 20110318
  Receipt Date: 20110310
  Transmission Date: 20110831
  Serious: Yes (Death)
  Sender: FDA-Public Use
  Company Number: A0760961A

PATIENT
  Age: 66 Year
  Sex: Male
  Weight: 90.9 kg

DRUGS (1)
  1. AVANDIA [Suspect]
     Route: 048
     Dates: start: 20050824, end: 20080316

REACTIONS (2)
  - MYOCARDIAL INFARCTION [None]
  - ARRHYTHMIA [None]
